FAERS Safety Report 6289453-4 (Version None)
Quarter: 2009Q3

REPORT INFORMATION
  Report Type: 
  Country: None (occurrence: None)
  Receive Date: 20090728
  Receipt Date: 20090728
  Transmission Date: 20100115
  Serious: Yes (Hospitalization)
  Sender: FDA-Public Use
  Company Number: None

PATIENT
  Age: 56 Year
  Sex: Female
  Weight: 56.6996 kg

DRUGS (1)
  1. SIMVASTATIN [Suspect]
     Indication: BLOOD CHOLESTEROL INCREASED
     Dosage: 40MG ONE TABLET PO, 2-4 YRS
     Route: 048

REACTIONS (4)
  - BONE DISORDER [None]
  - DRUG LEVEL INCREASED [None]
  - FATIGUE [None]
  - WEIGHT DECREASED [None]
